FAERS Safety Report 24830435 (Version 1)
Quarter: 2025Q1

REPORT INFORMATION
  Report Type: Spontaneous
  Country: FR (occurrence: FR)
  Receive Date: 20250110
  Receipt Date: 20250110
  Transmission Date: 20250409
  Serious: Yes (Other)
  Sender: ORGANON
  Company Number: FR-009507513-1801FRA006468

PATIENT

DRUGS (3)
  1. SIMVASTATIN [Suspect]
     Active Substance: SIMVASTATIN
  2. ATORVASTATIN [Suspect]
     Active Substance: ATORVASTATIN
  3. ROSUVASTATIN [Suspect]
     Active Substance: ROSUVASTATIN

REACTIONS (17)
  - Adverse event [Unknown]
  - Musculoskeletal disorder [Unknown]
  - Myalgia [Unknown]
  - Arthropathy [Unknown]
  - Muscle spasms [Unknown]
  - Tendon disorder [Unknown]
  - Dyspnoea [Unknown]
  - Fatigue [Unknown]
  - Dyspepsia [Unknown]
  - Chest discomfort [Unknown]
  - Paraesthesia [Unknown]
  - Amnesia [Unknown]
  - Sleep disorder [Unknown]
  - Skin reaction [Unknown]
  - Dry mouth [Unknown]
  - Cough [Unknown]
  - Impaired quality of life [Unknown]
